FAERS Safety Report 4469926-7 (Version None)
Quarter: 2004Q4

REPORT INFORMATION
  Report Type: 
  Country: None (occurrence: None)
  Receive Date: 20041008
  Receipt Date: 20040928
  Transmission Date: 20050328
  Serious: Yes (Hospitalization)
  Sender: FDA-Public Use
  Company Number: PHBS2004JP13020

PATIENT
  Sex: Female

DRUGS (1)
  1. VOLTAREN [Suspect]
     Indication: ANALGESIC THERAPY
     Dosage: 50 MG, ONCE/SINGLE
     Route: 054
     Dates: start: 20040926, end: 20040926

REACTIONS (4)
  - BLOOD PRESSURE SYSTOLIC DECREASED [None]
  - NAUSEA [None]
  - SHOCK [None]
  - VOMITING [None]
